FAERS Safety Report 6328245-4 (Version None)
Quarter: 2009Q3

REPORT INFORMATION
  Report Type: 
  Country: None (occurrence: None)
  Receive Date: 20090825
  Receipt Date: 20090129
  Transmission Date: 20100115
  Serious: No
  Sender: FDA-Public Use
  Company Number: US-ABBOTT-09P-163-0500979-00

PATIENT
  Age: 41 Year
  Sex: Female
  Weight: 57.204 kg

DRUGS (2)
  1. SYNTHROID [Suspect]
     Indication: HYPOTHYROIDISM
     Dates: start: 20090118
  2. SYNTHROID [Suspect]
     Dates: start: 19990101, end: 20090118

REACTIONS (1)
  - JOINT SWELLING [None]
